FAERS Safety Report 12684741 (Version 2)
Quarter: 2016Q4

REPORT INFORMATION
  Report Type: Spontaneous
  Country: US (occurrence: US)
  Receive Date: 20160825
  Receipt Date: 20161014
  Transmission Date: 20170207
  Serious: No
  Sender: FDA-Public Use
  Company Number: US-GLAXOSMITHKLINE-US2016116295

PATIENT
  Sex: Female
  Weight: 148.3 kg

DRUGS (6)
  1. TESSALON [Concomitant]
     Active Substance: BENZONATATE
  2. NUCALA [Suspect]
     Active Substance: MEPOLIZUMAB
     Dosage: 100 MG, UNK
     Route: 058
     Dates: start: 20160622, end: 20160726
  3. NUCALA [Suspect]
     Active Substance: MEPOLIZUMAB
     Indication: ASTHMA
     Dosage: 100 MG, UNK
     Route: 058
     Dates: start: 20160622, end: 20160726
  4. ZYFLO [Concomitant]
     Active Substance: ZILEUTON
  5. PREDNISONE. [Concomitant]
     Active Substance: PREDNISONE
  6. SINGULAIR [Concomitant]
     Active Substance: MONTELUKAST SODIUM

REACTIONS (4)
  - Arthralgia [Unknown]
  - Fatigue [Unknown]
  - Blood pressure abnormal [Unknown]
  - Serum sickness [Unknown]
